FAERS Safety Report 5825683-0 (Version None)
Quarter: 2008Q3

REPORT INFORMATION
  Report Type: 
  Country: None (occurrence: None)
  Receive Date: 20080729
  Receipt Date: 20080718
  Transmission Date: 20090109
  Serious: Yes (Death)
  Sender: FDA-Public Use
  Company Number: US-ROCHE-574409

PATIENT
  Sex: Female
  Weight: 61.7 kg

DRUGS (3)
  1. CAPECITABINE [Suspect]
     Dosage: 2 WEEKS ON AND 1 WEEK OFF (21 DAY CYCLE)
     Route: 048
     Dates: start: 20070810
  2. TYKERB [Concomitant]
     Route: 048
     Dates: start: 20070810
  3. ZOMETA [Concomitant]
     Route: 042
     Dates: start: 20070317

REACTIONS (1)
  - DISEASE PROGRESSION [None]
